FAERS Safety Report 22205851 (Version 2)
Quarter: 2023Q2

REPORT INFORMATION
  Report Type: Spontaneous
  Country: US (occurrence: US)
  Receive Date: 20230413
  Receipt Date: 20230518
  Transmission Date: 20230722
  Serious: No
  Sender: FDA-Public Use
  Company Number: US-SANOFI-01565430

PATIENT
  Age: 80 Year
  Sex: Female

DRUGS (2)
  1. LANTUS [Suspect]
     Active Substance: INSULIN GLARGINE
     Indication: Type 1 diabetes mellitus
     Dosage: 82 U, EVERY NIGHT
  2. LANTUS [Suspect]
     Active Substance: INSULIN GLARGINE
     Dosage: 72 IU, QD

REACTIONS (3)
  - Wound [Unknown]
  - Blood glucose decreased [Unknown]
  - Tremor [Unknown]
